FAERS Safety Report 8163900-5 (Version None)
Quarter: 2012Q1

REPORT INFORMATION
  Report Type: 
  Country: None (occurrence: None)
  Receive Date: 20120224
  Receipt Date: 20120222
  Transmission Date: 20120608
  Serious: Yes (Hospitalization)
  Sender: FDA-Public Use
  Company Number: PHEH2012US000704

PATIENT
  Age: 60 Year
  Sex: Male
  Weight: 89.342 kg

DRUGS (1)
  1. TOBI [Suspect]
     Indication: ANAEMIA
     Dosage: 300 MG, TWICE DAILY FOR 28 DAYS ON 28 DAYS OFF
     Dates: start: 20110928

REACTIONS (4)
  - SINUSITIS [None]
  - LUNG INFECTION [None]
  - PSEUDOMONAS INFECTION [None]
  - PULMONARY EMBOLISM [None]
